FAERS Safety Report 14175116 (Version 2)
Quarter: 2017Q4

REPORT INFORMATION
  Report Type: Spontaneous
  Country: KR (occurrence: KR)
  Receive Date: 20171109
  Receipt Date: 20171113
  Transmission Date: 20180321
  Serious: No
  Sender: FDA-Public Use
  Company Number: KR-REGENERON PHARMACEUTICALS, INC.-2017-26007

PATIENT

DRUGS (1)
  1. EYLEA [Suspect]
     Active Substance: AFLIBERCEPT
     Indication: POLYPOIDAL CHOROIDAL VASCULOPATHY
     Dosage: TOTAL OF 13 EYLEA INJECTIONS

REACTIONS (1)
  - Drug effect incomplete [Unknown]
